FAERS Safety Report 4443428-6 (Version None)
Quarter: 2004Q3

REPORT INFORMATION
  Report Type: 
  Country: None (occurrence: None)
  Receive Date: 20040901
  Receipt Date: 20040825
  Transmission Date: 20050211
  Serious: Yes (Life-Threatening)
  Sender: FDA-Public Use
  Company Number: 208450

PATIENT
  Age: 60 Year
  Sex: Female
  Weight: 86.6 kg

DRUGS (6)
  1. AVASTIN [Suspect]
     Indication: COLORECTAL CANCER METASTATIC
     Dosage: 400 MG, Q2W, INTRAVENOUS
     Route: 042
     Dates: start: 20040628, end: 20040811
  2. BENADRYL [Concomitant]
  3. ANZEMET [Concomitant]
  4. DECADRON [Concomitant]
  5. OXALIPLATIN (OXALIPLATIN) [Concomitant]
  6. LEUCOVORIN CALCIUM [Concomitant]

REACTIONS (6)
  - DYSPNOEA [None]
  - FLUSHING [None]
  - LOSS OF CONSCIOUSNESS [None]
  - MOANING [None]
  - RESPIRATORY ARREST [None]
  - STRIDOR [None]
